FAERS Safety Report 14986459 (Version 2)
Quarter: 2018Q2

REPORT INFORMATION
  Report Type: Report from Study
  Country: TW (occurrence: TW)
  Receive Date: 20180607
  Receipt Date: 20180621
  Transmission Date: 20180711
  Serious: Yes (Other)
  Sender: FDA-Public Use
  Company Number: TW-ELI_LILLY_AND_COMPANY-TW201806000882

PATIENT
  Age: 58 Year
  Sex: Male
  Weight: 76 kg

DRUGS (6)
  1. BLEOCIN                            /00183901/ [Suspect]
     Active Substance: BLEOMYCIN SULFATE
     Indication: LIP AND/OR ORAL CAVITY CANCER
     Dosage: 18 MG, UNKNOWN
     Route: 065
  2. VINCRISTINE [Suspect]
     Active Substance: VINCRISTINE
     Indication: LIP AND/OR ORAL CAVITY CANCER
     Dosage: 1.8 MG, UNKNOWN
  3. 5 FU [Suspect]
     Active Substance: FLUOROURACIL
     Indication: LIP AND/OR ORAL CAVITY CANCER
     Dosage: 1800 MG, UNKNOWN
     Route: 065
  4. CISPLATIN. [Suspect]
     Active Substance: CISPLATIN
     Indication: LIP AND/OR ORAL CAVITY CANCER
     Dosage: 104 MG, 2/W
     Route: 065
  5. CETUXIMAB. [Suspect]
     Active Substance: CETUXIMAB
     Indication: LIP AND/OR ORAL CAVITY CANCER
     Dosage: 250 MG/M2, WEEKLY (1/W)
     Route: 065
     Dates: start: 20180129
  6. MITOMYCIN C [Suspect]
     Active Substance: MITOMYCIN
     Indication: LIP AND/OR ORAL CAVITY CANCER
     Dosage: 6.9 MG, UNKNOWN
     Route: 065

REACTIONS (2)
  - White blood cell count decreased [Recovered/Resolved]
  - Off label use [Unknown]

NARRATIVE: CASE EVENT DATE: 20180528
